FAERS Safety Report 23764056 (Version 7)
Quarter: 2024Q4

REPORT INFORMATION
  Report Type: Spontaneous
  Country: BE (occurrence: BE)
  Receive Date: 20240419
  Receipt Date: 20241104
  Transmission Date: 20250115
  Serious: Yes (Hospitalization)
  Sender: SANDOZ
  Company Number: BE-GILEAD-2024-0668536

PATIENT
  Sex: Female
  Weight: 50.5 kg

DRUGS (58)
  1. CISPLATIN [Suspect]
     Active Substance: CISPLATIN
     Indication: Non-small cell lung cancer metastatic
     Dosage: 110 MG
     Route: 042
     Dates: start: 20240111
  2. CISPLATIN [Suspect]
     Active Substance: CISPLATIN
     Dosage: 110 MG
     Route: 042
     Dates: start: 20240111, end: 20240221
  3. CISPLATIN [Suspect]
     Active Substance: CISPLATIN
     Dosage: 110 MG
     Route: 042
     Dates: start: 20240131, end: 20240131
  4. CISPLATIN [Suspect]
     Active Substance: CISPLATIN
     Dosage: 110 MG
     Route: 042
     Dates: start: 20240221, end: 20240221
  5. CISPLATIN [Suspect]
     Active Substance: CISPLATIN
     Dosage: 83 MG
     Route: 042
     Dates: start: 20240320, end: 20240320
  6. PEMETREXED [Suspect]
     Active Substance: PEMETREXED
     Indication: Non-small cell lung cancer metastatic
     Dosage: 750 MG
     Route: 042
     Dates: start: 20240111, end: 20240221
  7. PEMETREXED [Suspect]
     Active Substance: PEMETREXED
     Dosage: 750 MG
     Route: 042
     Dates: start: 20240111, end: 20240111
  8. PEMETREXED [Suspect]
     Active Substance: PEMETREXED
     Dosage: 750 MG
     Route: 042
     Dates: start: 20240131, end: 20240131
  9. PEMETREXED [Suspect]
     Active Substance: PEMETREXED
     Dosage: 750 MG
     Route: 042
     Dates: start: 20240221, end: 20240221
  10. PEMETREXED [Suspect]
     Active Substance: PEMETREXED
     Dosage: 750 MG
     Route: 042
     Dates: start: 20240320, end: 20240320
  11. ZIMBERELIMAB [Suspect]
     Active Substance: ZIMBERELIMAB
     Indication: Non-small cell lung cancer metastatic
     Dosage: 360 MG
     Route: 042
     Dates: start: 20240111
  12. ZIMBERELIMAB [Suspect]
     Active Substance: ZIMBERELIMAB
     Dosage: 360 MG
     Route: 042
     Dates: start: 20240111, end: 20240221
  13. ZIMBERELIMAB [Suspect]
     Active Substance: ZIMBERELIMAB
     Dosage: 360 MG
     Route: 042
     Dates: start: 20240131, end: 20240131
  14. ZIMBERELIMAB [Suspect]
     Active Substance: ZIMBERELIMAB
     Dosage: 360 MG
     Route: 042
     Dates: start: 20240221, end: 20240221
  15. ZIMBERELIMAB [Suspect]
     Active Substance: ZIMBERELIMAB
     Dosage: 360 MG
     Route: 042
     Dates: start: 20240320, end: 20240320
  16. EBASTINE [Concomitant]
     Active Substance: EBASTINE
     Indication: Prophylaxis
     Route: 048
     Dates: start: 20240313
  17. AKYNZEO [Concomitant]
     Indication: Prophylaxis
     Route: 048
     Dates: start: 20240111
  18. ARANESP [Concomitant]
     Active Substance: DARBEPOETIN ALFA
     Indication: Anaemia
     Route: 058
     Dates: start: 20240313
  19. DAFALGAN [Concomitant]
     Active Substance: ACETAMINOPHEN
     Indication: Chest pain
     Route: 048
     Dates: start: 20231221
  20. ACETAMINOPHEN [Concomitant]
     Active Substance: ACETAMINOPHEN
     Indication: Chest pain
     Dosage: UNK
     Route: 065
  21. DEXAMETHASONE [Concomitant]
     Active Substance: DEXAMETHASONE
     Indication: Prophylaxis
     Route: 048
     Dates: start: 20240109
  22. ESCITALOPRAM [Concomitant]
     Active Substance: ESCITALOPRAM OXALATE
     Indication: Depression
     Route: 048
     Dates: start: 20231111
  23. FELDENE [Concomitant]
     Active Substance: PIROXICAM
     Indication: Chest pain
     Dosage: UNK
     Route: 048
     Dates: start: 20240313
  24. FOLIC ACID [Concomitant]
     Active Substance: FOLIC ACID
     Indication: Prophylaxis
     Route: 048
     Dates: start: 20231220
  25. NADROPARIN CALCIUM [Concomitant]
     Active Substance: NADROPARIN CALCIUM
     Indication: Prophylaxis
     Dosage: UNK
     Route: 058
     Dates: start: 20240408, end: 20240410
  26. IBUPROFEN [Concomitant]
     Active Substance: IBUPROFEN
     Indication: Chest pain
     Route: 048
     Dates: start: 20231215
  27. INNOHEP [Concomitant]
     Active Substance: TINZAPARIN SODIUM
     Indication: Pulmonary embolism
     Dosage: UNK
     Route: 058
     Dates: start: 20240219
  28. BECLOMETHASONE DIPROPIONATE\FORMOTEROL FUMARATE [Concomitant]
     Active Substance: BECLOMETHASONE DIPROPIONATE\FORMOTEROL FUMARATE
     Indication: Dyspnoea
     Route: 055
     Dates: start: 20231101
  29. KCL [Concomitant]
     Active Substance: POTASSIUM CHLORIDE
     Indication: Hypokalaemia
     Dosage: 740 MG
     Route: 042
     Dates: start: 20240320, end: 20240320
  30. KCL [Concomitant]
     Active Substance: POTASSIUM CHLORIDE
     Indication: Hypokalaemia
     Route: 048
     Dates: start: 20240413
  31. KALIUM-R [Concomitant]
     Route: 042
     Dates: start: 20240313, end: 20240313
  32. KALIUM-R [Concomitant]
     Indication: Hypokalaemia
     Route: 048
     Dates: start: 20240413
  33. LEVOTHYROXINE [Concomitant]
     Active Substance: LEVOTHYROXINE
     Indication: Hypothyroidism
     Route: 048
     Dates: start: 20240313, end: 20240429
  34. LEVOTHYROXINE [Concomitant]
     Active Substance: LEVOTHYROXINE
     Route: 048
     Dates: start: 20240313, end: 20240429
  35. MINERAL OIL [Concomitant]
     Active Substance: MINERAL OIL
     Indication: Constipation
     Dosage: UNK
     Route: 048
     Dates: start: 20240408
  36. SODIUM PICOSULFATE [Concomitant]
     Active Substance: SODIUM PICOSULFATE
     Indication: Constipation
     Dosage: UNK
     Route: 048
     Dates: start: 20240408, end: 20240409
  37. ALIZAPRIDE HYDROCHLORIDE [Concomitant]
     Active Substance: ALIZAPRIDE HYDROCHLORIDE
     Indication: Prophylaxis
     Route: 048
     Dates: start: 20240111
  38. POLYETHYLENE GLYCOLS [Concomitant]
     Active Substance: POLYETHYLENE GLYCOLS
     Indication: Prophylaxis
     Route: 048
     Dates: start: 20231214
  39. OMEPRAZOLE [Concomitant]
     Active Substance: OMEPRAZOLE
     Indication: Prophylaxis
     Dosage: UNK
     Route: 048
     Dates: start: 20240313
  40. ONDANSETRON [Concomitant]
     Active Substance: ONDANSETRON
     Indication: Nausea
     Dosage: UNK
     Route: 042
     Dates: start: 20240403, end: 20240409
  41. OPTICROM [Concomitant]
     Active Substance: CROMOLYN SODIUM
     Indication: Conjunctivitis
     Route: 047
     Dates: start: 20240313
  42. OXYCODONE HYDROCHLORIDE [Concomitant]
     Active Substance: OXYCODONE HYDROCHLORIDE
     Indication: Chest pain
     Route: 048
     Dates: start: 20240121
  43. PANTOPRAZOLE [Concomitant]
     Active Substance: PANTOPRAZOLE
     Indication: Prophylaxis
     Route: 048
     Dates: start: 20231128
  44. ACETAMINOPHEN [Concomitant]
     Active Substance: ACETAMINOPHEN
     Indication: Atelectasis
     Dosage: UNK
     Route: 065
  45. PEGFILGRASTIM [Concomitant]
     Active Substance: PEGFILGRASTIM
     Indication: Neutrophil count decreased
     Dosage: UNK
     Route: 058
     Dates: start: 20240417, end: 20240417
  46. PLATELETS [Concomitant]
     Active Substance: HUMAN PLATELET, ALLOGENIC
     Indication: Platelet count decreased
     Dosage: UNK
     Route: 048
  47. PLATELETS [Concomitant]
     Active Substance: HUMAN PLATELET, ALLOGENIC
     Route: 042
  48. PRIMPERAN [Concomitant]
     Active Substance: METOCLOPRAMIDE HYDROCHLORIDE
     Indication: Prophylaxis
     Route: 048
     Dates: start: 20231226
  49. SOLU-MEDROL [Concomitant]
     Active Substance: METHYLPREDNISOLONE SODIUM SUCCINATE
     Indication: Prophylaxis
     Route: 042
     Dates: start: 20240111
  50. OLODATEROL HYDROCHLORIDE\TIOTROPIUM BROMIDE MONOHYDRATE [Concomitant]
     Active Substance: OLODATEROL HYDROCHLORIDE\TIOTROPIUM BROMIDE MONOHYDRATE
     Indication: Dyspnoea
     Route: 048
     Dates: start: 20240117
  51. TERRA-CORTRIL [Concomitant]
     Active Substance: HYDROCORTISONE ACETATE\OXYTETRACYCLINE HYDROCHLORIDE
     Indication: Conjunctivitis
     Route: 047
     Dates: start: 20240313
  52. TRAMADOL HYDROCHLORIDE [Concomitant]
     Active Substance: TRAMADOL HYDROCHLORIDE
     Indication: Chest pain
     Route: 048
     Dates: start: 20231226
  53. TRAMADOL HYDROCHLORIDE [Concomitant]
     Active Substance: TRAMADOL HYDROCHLORIDE
     Indication: Chest pain
     Route: 048
     Dates: start: 20240117
  54. TRAZODONE [Concomitant]
     Active Substance: TRAZODONE HYDROCHLORIDE
     Indication: Depression
     Dosage: UNK
     Route: 048
     Dates: start: 20240406, end: 20240410
  55. VENTOLIN [Concomitant]
     Active Substance: ALBUTEROL SULFATE
     Indication: Dyspnoea
     Route: 055
     Dates: start: 20240221
  56. VITAMIN B12 [Concomitant]
     Active Substance: CYANOCOBALAMIN
     Indication: Prophylaxis
     Route: 030
     Dates: start: 20231220
  57. XANAX [Concomitant]
     Active Substance: ALPRAZOLAM
     Indication: Depression
     Route: 048
     Dates: start: 20240117
  58. ZOLPIDEM [Concomitant]
     Active Substance: ZOLPIDEM TARTRATE
     Indication: Prophylaxis
     Route: 048
     Dates: start: 20231226

REACTIONS (2)
  - Atelectasis [Not Recovered/Not Resolved]
  - General physical condition abnormal [Recovered/Resolved]

NARRATIVE: CASE EVENT DATE: 20240330
